FAERS Safety Report 9973656 (Version 4)
Quarter: 2014Q1

REPORT INFORMATION
  Report Type: Spontaneous
  Country: US (occurrence: US)
  Receive Date: 20140306
  Receipt Date: 20140320
  Transmission Date: 20141002
  Serious: Yes (Hospitalization)
  Sender: FDA-Public Use
  Company Number: US-BAYER-2014-031441

PATIENT
  Age: 23 Year
  Sex: Female
  Weight: 122.45 kg

DRUGS (2)
  1. MIRENA [Suspect]
     Indication: CONTRACEPTION
     Dosage: 20 MCG/24HR, CONT
     Route: 015
     Dates: start: 20100816, end: 20101029
  2. FLAGYL [Concomitant]
     Dosage: 500 MG, BID; QUANTITY 14
     Route: 048
     Dates: start: 20100827

REACTIONS (8)
  - Uterine perforation [None]
  - Post abortion haemorrhage [None]
  - Ectopic pregnancy with contraceptive device [None]
  - Ruptured ectopic pregnancy [None]
  - Drug ineffective [None]
  - Emotional distress [None]
  - Injury [None]
  - Pain [None]
